FAERS Safety Report 18061615 (Version 1)
Quarter: 2020Q3

REPORT INFORMATION
  Report Type: Other
  Country: GB (occurrence: GB)
  Receive Date: 20200723
  Receipt Date: 20200723
  Transmission Date: 20201103
  Serious: Yes (Other)
  Sender: FDA-Public Use
  Company Number: GB-ROCHE-2646430

PATIENT
  Age: 59 Year
  Sex: Male

DRUGS (6)
  1. RIBAVIRIN. [Suspect]
     Active Substance: RIBAVIRIN
     Indication: CHRONIC HEPATITIS C
     Route: 065
     Dates: start: 2015
  2. DACLATASVIR. [Suspect]
     Active Substance: DACLATASVIR
     Route: 065
     Dates: start: 2014
  3. DIHYDROCODEINE [Concomitant]
     Active Substance: DIHYDROCODEINE
  4. METOCLOPRAMIDE. [Concomitant]
     Active Substance: METOCLOPRAMIDE
  5. SOVALDI [Suspect]
     Active Substance: SOFOSBUVIR
     Indication: CHRONIC HEPATITIS C
     Route: 065
     Dates: start: 2015
  6. DACLATASVIR. [Suspect]
     Active Substance: DACLATASVIR
     Indication: CHRONIC HEPATITIS C
     Route: 065
     Dates: start: 2015

REACTIONS (3)
  - Hepatitis C [Recovered/Resolved]
  - Drug ineffective [Unknown]
  - Genotype drug resistance test positive [Unknown]
